FAERS Safety Report 15572831 (Version 4)
Quarter: 2019Q3

REPORT INFORMATION
  Report Type: Report from Study
  Country: None (occurrence: US)
  Receive Date: 20181031
  Receipt Date: 20190726
  Transmission Date: 20191004
  Serious: Yes (Hospitalization, Other)
  Sender: FDA-Public Use
  Company Number: US-ABBVIE-18K-163-2540059-00

PATIENT
  Age: 70 Year
  Sex: Female
  Weight: 67.19 kg

DRUGS (8)
  1. HUMIRA [Suspect]
     Active Substance: ADALIMUMAB
     Indication: PSORIATIC ARTHROPATHY
  2. HUMIRA [Suspect]
     Active Substance: ADALIMUMAB
     Indication: PSORIASIS
  3. HUMIRA [Suspect]
     Active Substance: ADALIMUMAB
     Indication: PSORIASIS
     Route: 058
     Dates: start: 2018
  4. HUMIRA [Suspect]
     Active Substance: ADALIMUMAB
     Indication: PSORIASIS
  5. LOSARTAN. [Concomitant]
     Active Substance: LOSARTAN
     Indication: HYPERTENSION
  6. VITAMIN D [Concomitant]
     Active Substance: VITAMIN D NOS
     Indication: OSTEOPENIA
  7. CALCIUM [Concomitant]
     Active Substance: CALCIUM
     Indication: OSTEOPENIA
  8. OCUVITE [Concomitant]
     Active Substance: VITAMINS
     Indication: EYE DISORDER

REACTIONS (14)
  - Meniscus injury [Unknown]
  - Fall [Not Recovered/Not Resolved]
  - Concussion [Not Recovered/Not Resolved]
  - Headache [Recovering/Resolving]
  - Gait disturbance [Recovering/Resolving]
  - General physical condition abnormal [Unknown]
  - Contusion [Unknown]
  - Haemorrhage intracranial [Recovering/Resolving]
  - Swelling [Recovering/Resolving]
  - Cerebral haemorrhage [Not Recovered/Not Resolved]
  - Head injury [Recovering/Resolving]
  - Macular degeneration [Unknown]
  - Injection site haemorrhage [Unknown]
  - Skull fracture [Unknown]

NARRATIVE: CASE EVENT DATE: 20181025
